FAERS Safety Report 12953596 (Version 1)
Quarter: 2016Q4

REPORT INFORMATION
  Report Type: Report from Study
  Country: US (occurrence: US)
  Receive Date: 20161117
  Receipt Date: 20161117
  Transmission Date: 20170207
  Serious: Yes (Other)
  Sender: FDA-Public Use
  Company Number: US-BEH-2016073887

PATIENT
  Age: 66 Year
  Sex: Male

DRUGS (3)
  1. HIZENTRA [Suspect]
     Active Substance: HUMAN IMMUNOGLOBULIN G
     Dosage: 16 G, QW
     Route: 065
     Dates: start: 20150619, end: 20161008
  2. HIZENTRA [Suspect]
     Active Substance: HUMAN IMMUNOGLOBULIN G
     Dosage: 16 G, QW
     Route: 065
     Dates: start: 20150619, end: 20161008
  3. HIZENTRA [Suspect]
     Active Substance: HUMAN IMMUNOGLOBULIN G
     Indication: PRIMARY IMMUNODEFICIENCY SYNDROME
     Dosage: 16 G, QW
     Route: 065
     Dates: start: 20150619, end: 20161008

REACTIONS (7)
  - Nausea [Recovering/Resolving]
  - Local reaction [Recovering/Resolving]
  - Swelling [Recovering/Resolving]
  - Abdominal abscess [Recovering/Resolving]
  - Infection [Recovering/Resolving]
  - Headache [Recovering/Resolving]
  - Adverse drug reaction [Recovering/Resolving]

NARRATIVE: CASE EVENT DATE: 201609
